FAERS Safety Report 24527529 (Version 1)
Quarter: 2024Q4

REPORT INFORMATION
  Report Type: Report from Study
  Country: US (occurrence: US)
  Receive Date: 20241021
  Receipt Date: 20241021
  Transmission Date: 20250114
  Serious: Yes (Other)
  Sender: ALEXION PHARMACEUTICALS
  Company Number: US-AstraZeneca-CH-00724117A

PATIENT

DRUGS (4)
  1. BYDUREON BCISE [Suspect]
     Active Substance: EXENATIDE
  2. BYDUREON BCISE [Suspect]
     Active Substance: EXENATIDE
  3. BYDUREON BCISE [Suspect]
     Active Substance: EXENATIDE
  4. BYDUREON BCISE [Suspect]
     Active Substance: EXENATIDE

REACTIONS (3)
  - Weight decreased [Unknown]
  - Illness [Unknown]
  - Cerebrovascular accident [Unknown]
